FAERS Safety Report 19199719 (Version 1)
Quarter: 2021Q2

REPORT INFORMATION
  Report Type: Report from Study
  Country: US (occurrence: US)
  Receive Date: 20210430
  Receipt Date: 20210430
  Transmission Date: 20210717
  Serious: Yes (Other)
  Sender: FDA-Public Use
  Company Number: US-TAKEDA-US201932875

PATIENT
  Sex: Female

DRUGS (2)
  1. HUMAN NORMAL IMMUNOGLOBULIN; LIQUID [Suspect]
     Active Substance: HUMAN IMMUNOGLOBULIN G
     Indication: PRIMARY IMMUNODEFICIENCY SYNDROME
     Dosage: 10 GRAM, 1/WEEK
     Route: 042
  2. PREDNISONE. [Suspect]
     Active Substance: PREDNISONE
     Indication: BACK PAIN
     Dosage: UNK
     Route: 065

REACTIONS (12)
  - Pain [Unknown]
  - Weight decreased [Unknown]
  - Obsessive-compulsive disorder [Unknown]
  - Pulmonary pain [Unknown]
  - Depression [Unknown]
  - Fatigue [Unknown]
  - Influenza [Unknown]
  - Diabetes mellitus [Unknown]
  - Infusion site haemorrhage [Unknown]
  - Condition aggravated [Recovered/Resolved]
  - Illness [Unknown]
  - Malaise [Unknown]
